FAERS Safety Report 22192933 (Version 1)
Quarter: 2023Q2

REPORT INFORMATION
  Report Type: Spontaneous
  Country: CN (occurrence: CN)
  Receive Date: 20230410
  Receipt Date: 20230410
  Transmission Date: 20230721
  Serious: Yes (Other)
  Sender: FDA-Public Use
  Company Number: CN-ELI_LILLY_AND_COMPANY-CN202304002902

PATIENT
  Age: 67 Year
  Sex: Male

DRUGS (7)
  1. PEMETREXED [Suspect]
     Active Substance: PEMETREXED
     Indication: Lung adenocarcinoma
     Dosage: 865 MG, CYCLICAL
     Route: 065
     Dates: start: 20201230
  2. CISPLATIN [Concomitant]
     Active Substance: CISPLATIN
     Indication: Lung adenocarcinoma
     Dosage: 130 MG, CYCLICAL
     Route: 065
     Dates: start: 20201230
  3. CISPLATIN [Concomitant]
     Active Substance: CISPLATIN
     Dosage: 90 MG, CYCLICAL
     Dates: start: 20210302
  4. PEMBROLIZUMAB [Concomitant]
     Active Substance: PEMBROLIZUMAB
     Indication: Lung adenocarcinoma
     Dosage: UNK, CYCLICAL
     Route: 065
     Dates: start: 20210111
  5. LANSOPRAZOLE [Concomitant]
     Active Substance: LANSOPRAZOLE
     Indication: Abdominal discomfort
     Dosage: UNK, UNKNOWN
     Route: 065
     Dates: start: 20210323
  6. LANSOPRAZOLE [Concomitant]
     Active Substance: LANSOPRAZOLE
     Dosage: 30 MG, UNKNOWN
     Route: 065
     Dates: start: 20210326
  7. METOCLOPRAMIDE [Concomitant]
     Active Substance: METOCLOPRAMIDE
     Indication: Abdominal discomfort
     Dosage: 10 MG, UNKNOWN
     Route: 030

REACTIONS (7)
  - Melanosis [Recovered/Resolved]
  - Pleural effusion [Recovered/Resolved]
  - Dermatitis exfoliative [Recovered/Resolved]
  - Skin exfoliation [Recovered/Resolved]
  - Chills [Unknown]
  - Abdominal discomfort [Unknown]
  - Decreased appetite [Unknown]

NARRATIVE: CASE EVENT DATE: 20210326
